FAERS Safety Report 5373894-3 (Version None)
Quarter: 2007Q2

REPORT INFORMATION
  Report Type: 
  Country: None (occurrence: None)
  Receive Date: 20070628
  Receipt Date: 20070618
  Transmission Date: 20071010
  Serious: Yes (Disabling, Other)
  Sender: FDA-Public Use
  Company Number: US-PFIZER INC-2007051263

PATIENT
  Sex: Female
  Weight: 85.909 kg

DRUGS (4)
  1. LIPITOR [Suspect]
     Indication: BLOOD CHOLESTEROL INCREASED
     Dosage: DAILY DOSE:20MG
     Dates: start: 20070525, end: 20070529
  2. TYLENOL [Concomitant]
  3. LISINOPRIL [Concomitant]
  4. PRILOSEC [Concomitant]

REACTIONS (3)
  - ABASIA [None]
  - MUSCLE SPASMS [None]
  - PAIN [None]
